FAERS Safety Report 13540203 (Version 1)
Quarter: 2017Q2

REPORT INFORMATION
  Report Type: Spontaneous
  Country: AT (occurrence: AT)
  Receive Date: 20170512
  Receipt Date: 20170512
  Transmission Date: 20170830
  Serious: Yes (Other)
  Sender: FDA-Public Use
  Company Number: AT-ALEMBIC PHARMACUETICALS LIMITED-2017SCAL000391

PATIENT

DRUGS (1)
  1. LAMOTRIGINE. [Suspect]
     Active Substance: LAMOTRIGINE
     Indication: PRODUCT USED FOR UNKNOWN INDICATION
     Dosage: UNK
     Route: 048

REACTIONS (22)
  - Accidental overdose [Unknown]
  - Toxicity to various agents [Unknown]
  - Somnolence [Unknown]
  - Tremor [Unknown]
  - Dyskinesia [Unknown]
  - Ataxia [Unknown]
  - Hypertension [Unknown]
  - Choreoathetosis [Unknown]
  - Vomiting [Unknown]
  - Agitation [Unknown]
  - Intentional overdose [Unknown]
  - Vertigo [Unknown]
  - Nausea [Unknown]
  - Headache [Unknown]
  - Electrocardiogram repolarisation abnormality [Unknown]
  - Hypotension [Unknown]
  - Muscle contractions involuntary [Unknown]
  - Tachycardia [Unknown]
  - Coma [Unknown]
  - Diplopia [Unknown]
  - Seizure [Unknown]
  - Nystagmus [Unknown]
